FAERS Safety Report 5607910-8 (Version None)
Quarter: 2008Q1

REPORT INFORMATION
  Report Type: 
  Country: None (occurrence: None)
  Receive Date: 20080130
  Receipt Date: 20080108
  Transmission Date: 20080703
  Serious: No
  Sender: FDA-Public Use
  Company Number: US-BAXTER-2008BH000008

PATIENT
  Age: 65 Year
  Weight: 85 kg

DRUGS (17)
  1. HEPARIN SODIUM [Suspect]
     Indication: PROPHYLAXIS
     Route: 010
     Dates: start: 20071227, end: 20071227
  2. HEPARIN SODIUM [Suspect]
     Route: 010
     Dates: start: 20071227, end: 20071227
  3. HEPARIN SODIUM [Suspect]
     Route: 010
     Dates: start: 20071227, end: 20071227
  4. HEPARIN SODIUM [Suspect]
     Route: 010
     Dates: start: 20071227, end: 20071227
  5. HEPARIN SODIUM [Suspect]
     Route: 010
     Dates: start: 20071227, end: 20071227
  6. HEPARIN SODIUM [Suspect]
     Route: 010
     Dates: start: 20071227, end: 20071227
  7. PHOSLO [Concomitant]
     Indication: DRUG USE FOR UNKNOWN INDICATION
     Route: 048
  8. NEPHPLEX RX TABS [Concomitant]
     Indication: DRUG USE FOR UNKNOWN INDICATION
     Route: 048
  9. BACTRIM [Concomitant]
     Indication: PROPHYLAXIS
     Route: 048
  10. COZAAR [Concomitant]
     Indication: DRUG USE FOR UNKNOWN INDICATION
     Route: 048
  11. TERAZOSIN HYDROCHLORIDE [Concomitant]
     Indication: DRUG USE FOR UNKNOWN INDICATION
     Route: 048
  12. OMEPRAZOLE [Concomitant]
     Indication: DRUG USE FOR UNKNOWN INDICATION
     Route: 048
  13. ARANESP [Concomitant]
     Indication: DRUG USE FOR UNKNOWN INDICATION
     Dosage: DOSE UNIT:UNKNOWN
     Route: 065
  14. HECTOROL [Concomitant]
     Indication: DRUG USE FOR UNKNOWN INDICATION
     Dosage: DOSE UNIT:UNKNOWN
     Route: 065
  15. VENOFER [Concomitant]
     Indication: DRUG USE FOR UNKNOWN INDICATION
     Dosage: DOSE UNIT:UNKNOWN
     Route: 065
  16. ALLOPURINOL [Concomitant]
     Indication: DRUG USE FOR UNKNOWN INDICATION
     Route: 065
  17. IMURAN [Concomitant]
     Indication: WHITE BLOOD CELL COUNT INCREASED
     Route: 048

REACTIONS (3)
  - FEELING ABNORMAL [None]
  - HYPERHIDROSIS [None]
  - UNRESPONSIVE TO STIMULI [None]
